FAERS Safety Report 4360058-5 (Version None)
Quarter: 2004Q2

REPORT INFORMATION
  Report Type: 
  Country: None (occurrence: None)
  Receive Date: 20040513
  Receipt Date: 20040427
  Transmission Date: 20050107
  Serious: Yes (Hospitalization)
  Sender: FDA-Public Use
  Company Number: DSA_24340_2004

PATIENT
  Age: 72 Year
  Sex: Female

DRUGS (12)
  1. LORAZEPAM [Suspect]
     Dates: end: 20040308
  2. EFFEXOR [Suspect]
     Dosage: 2 QD PO
     Route: 048
     Dates: start: 20030101, end: 20040308
  3. ACETAMINOPHEN W/ CODEINE [Suspect]
     Dates: end: 20040308
  4. HALDOL [Suspect]
     Dates: end: 20040308
  5. AMITRIPTYLINE HCL [Suspect]
     Dates: end: 20040308
  6. TRIHEXYPHENIDYL HCL [Suspect]
     Dates: end: 20040308
  7. SOLIAN [Suspect]
     Dosage: 1 QD PO
     Route: 048
     Dates: end: 20040308
  8. STABLON [Concomitant]
     Dosage: 3 QD PO
     Route: 048
     Dates: end: 20040308
  9. ALVOCARDYL [Concomitant]
  10. PLAVIX [Concomitant]
  11. SERMION [Concomitant]
  12. METFORMIN HCL [Concomitant]

REACTIONS (8)
  - C-REACTIVE PROTEIN INCREASED [None]
  - CONFUSIONAL STATE [None]
  - DIARRHOEA [None]
  - HYPERTENSION [None]
  - MEDICATION ERROR [None]
  - PYREXIA [None]
  - SEROTONIN SYNDROME [None]
  - TONGUE BITING [None]
